FAERS Safety Report 18101757 (Version 3)
Quarter: 2020Q3

REPORT INFORMATION
  Report Type: Spontaneous
  Country: US (occurrence: US)
  Receive Date: 20200802
  Receipt Date: 20200914
  Transmission Date: 20201103
  Serious: Yes (Disabling)
  Sender: FDA-Public Use
  Company Number: US-LUPIN PHARMACEUTICALS INC.-2020-03957

PATIENT
  Sex: Female
  Weight: 77 kg

DRUGS (5)
  1. EXCEDRIN [Concomitant]
     Active Substance: ACETAMINOPHEN\ASPIRIN\CAFFEINE
     Indication: MIGRAINE
     Dosage: UNK
     Route: 048
  2. ONDANSETRON [Concomitant]
     Active Substance: ONDANSETRON
     Indication: NAUSEA
     Dosage: 4 MILLIGRAM UNK
     Route: 048
  3. LEVOTHYROXINE SODIUM TABLETS, 75 MCG [Suspect]
     Active Substance: LEVOTHYROXINE SODIUM
     Indication: AUTOIMMUNE THYROIDITIS
     Dosage: 75 MCG, QD
     Route: 048
     Dates: start: 20200404, end: 20200530
  4. SUMATRIPTAN. [Concomitant]
     Active Substance: SUMATRIPTAN
     Indication: MIGRAINE
     Dosage: 5 MILLIGRAM UNK
     Route: 045
  5. ONDANSETRON [Concomitant]
     Active Substance: ONDANSETRON
     Indication: VOMITING

REACTIONS (16)
  - Dyspnoea [Unknown]
  - Migraine [Recovered/Resolved]
  - Fatigue [Recovered/Resolved]
  - Dizziness [Recovered/Resolved]
  - Heart rate increased [Not Recovered/Not Resolved]
  - Asthenia [Unknown]
  - Product use in unapproved indication [Unknown]
  - Chest pain [Not Recovered/Not Resolved]
  - Nausea [Recovered/Resolved]
  - Vertigo [Recovered/Resolved]
  - Temperature intolerance [Not Recovered/Not Resolved]
  - Malaise [Recovered/Resolved]
  - Dysstasia [Not Recovered/Not Resolved]
  - Vomiting projectile [Recovered/Resolved]
  - Balance disorder [Unknown]
  - Product substitution error [Unknown]

NARRATIVE: CASE EVENT DATE: 2020
